FAERS Safety Report 24813907 (Version 1)
Quarter: 2025Q1

REPORT INFORMATION
  Report Type: Spontaneous
  Country: US (occurrence: US)
  Receive Date: 20250107
  Receipt Date: 20250107
  Transmission Date: 20250408
  Serious: Yes (Other)
  Sender: TEVA
  Company Number: US-TEVA-VS-3276834

PATIENT
  Age: 47 Year
  Sex: Female

DRUGS (6)
  1. ADDERALL [Suspect]
     Active Substance: AMPHETAMINE ASPARTATE\AMPHETAMINE SULFATE\DEXTROAMPHETAMINE SACCHARATE\DEXTROAMPHETAMINE SULFATE
     Indication: Product used for unknown indication
     Route: 065
  2. NUVIGIL [Suspect]
     Active Substance: ARMODAFINIL
     Indication: Product used for unknown indication
     Route: 065
  3. PROVIGIL [Suspect]
     Active Substance: MODAFINIL
     Indication: Product used for unknown indication
     Route: 065
  4. XYWAV [Suspect]
     Active Substance: CALCIUM OXYBATE\MAGNESIUM OXYBATE\POTASSIUM OXYBATE\SODIUM OXYBATE
     Indication: Product used for unknown indication
     Route: 065
  5. RITALIN [Suspect]
     Active Substance: METHYLPHENIDATE HYDROCHLORIDE
     Indication: Product used for unknown indication
     Route: 065
  6. WAKIX [Suspect]
     Active Substance: PITOLISANT HYDROCHLORIDE
     Indication: Product used for unknown indication
     Route: 065

REACTIONS (26)
  - Confusional state [Unknown]
  - Cerebral disorder [Unknown]
  - Injury [Unknown]
  - Nocturia [Unknown]
  - Somnolence [Unknown]
  - Muscle spasms [Unknown]
  - Pain in extremity [Unknown]
  - Constipation [Unknown]
  - Nasopharyngitis [Unknown]
  - Dyspnoea [Unknown]
  - Vision blurred [Unknown]
  - Product packaging issue [Unknown]
  - Diarrhoea [Unknown]
  - Anaemia [Unknown]
  - Product administration interrupted [Unknown]
  - Weight increased [Unknown]
  - Snoring [Unknown]
  - Dyspepsia [Unknown]
  - Memory impairment [Unknown]
  - Abdominal pain [Unknown]
  - Hypoacusis [Unknown]
  - Infection [Unknown]
  - Feeling jittery [Unknown]
  - Weight decreased [Unknown]
  - Gastrooesophageal reflux disease [Unknown]
  - Agitation [Unknown]
